FAERS Safety Report 23698990 (Version 1)
Quarter: 2024Q2

REPORT INFORMATION
  Report Type: Spontaneous
  Country: US (occurrence: None)
  Receive Date: 20240402
  Receipt Date: 20240402
  Transmission Date: 20240716
  Serious: No
  Sender: FDA-Public Use
  Company Number: None

PATIENT
  Age: 41 Year
  Sex: Female
  Weight: 59.4 kg

DRUGS (2)
  1. SCOPOLAMINE [Suspect]
     Active Substance: SCOPOLAMINE
     Indication: Motion sickness
     Dosage: 4 PATCHES 1 PATCH 3 DAYS TOPICAL?
     Route: 061
     Dates: start: 20240331, end: 20240401
  2. Multivitamin [Concomitant]

REACTIONS (4)
  - Vertigo [None]
  - Confusional state [None]
  - Memory impairment [None]
  - Mydriasis [None]

NARRATIVE: CASE EVENT DATE: 20240401
